FAERS Safety Report 24953995 (Version 1)
Quarter: 2025Q1

REPORT INFORMATION
  Report Type: Spontaneous
  Country: US (occurrence: None)
  Receive Date: 20250211
  Receipt Date: 20250211
  Transmission Date: 20250408
  Serious: No
  Sender: NATCO PHARMA
  Company Number: US-NATCOUSA-2025-NATCOUSA-000250

PATIENT
  Age: 61 Year
  Sex: Female
  Weight: 75.3 kg

DRUGS (1)
  1. LETROZOLE [Suspect]
     Active Substance: LETROZOLE
     Indication: Hormone receptor positive breast cancer
     Route: 048

REACTIONS (6)
  - Insomnia [Recovered/Resolved]
  - Weight increased [Recovered/Resolved]
  - Brain fog [Recovered/Resolved]
  - Heart rate increased [Recovered/Resolved]
  - Dizziness [Recovered/Resolved]
  - Pain in extremity [Recovered/Resolved]
